FAERS Safety Report 9851946 (Version 3)
Quarter: 2014Q1

REPORT INFORMATION
  Report Type: Spontaneous
  Country: CA (occurrence: CA)
  Receive Date: 20140129
  Receipt Date: 20140327
  Transmission Date: 20141002
  Serious: Yes (Other)
  Sender: FDA-Public Use
  Company Number: CA-BEH-2014040265

PATIENT
  Age: 26 Year
  Sex: Male

DRUGS (6)
  1. PRIVIGEN [Suspect]
     Dosage: 50 CC/HR AND GRADUALLY INCREASED TO 150 CC/HR,  IN TOTAL 8 X 20 G VIALS
     Route: 042
     Dates: start: 20140109, end: 20140109
  2. PRIVIGEN [Suspect]
     Indication: THROMBOCYTOPENIA
     Dosage: 50 CC/HR AND GRADUALLY INCREASED TO 150 CC/HR, IN TOTAL 2 X 5 G VIALS
     Route: 042
     Dates: start: 20140109, end: 20140109
  3. PRIVIGEN [Suspect]
     Dosage: 50 CC/HR AND GRADUALLY INCREASED TO 150 CC/HR,  IN TOTAL 8 X 20 G VIALS
     Route: 042
     Dates: start: 20140110, end: 20140110
  4. PRIVIGEN [Suspect]
     Dosage: 50 CC/HR AND GRADUALLY INCREASED TO 150 CC/HR,  IN TOTAL 8 X 20 G VIALS
     Route: 042
     Dates: start: 20140111, end: 20140111
  5. PRIVIGEN [Suspect]
     Dosage: 50 CC/HR AND GRADUALLY INCREASED TO 150 CC/HR,  IN TOTAL 2 X 5 G VIALS
     Route: 042
     Dates: start: 20140110, end: 20140110
  6. TYLENOL [Concomitant]

REACTIONS (5)
  - Haemolysis [Recovered/Resolved]
  - Haemoglobin decreased [Recovered/Resolved with Sequelae]
  - Blood bilirubin increased [Recovered/Resolved with Sequelae]
  - Haptoglobin decreased [Recovered/Resolved with Sequelae]
  - Red blood cell spherocytes present [Recovered/Resolved]
